FAERS Safety Report 12634128 (Version 1)
Quarter: 2016Q3

REPORT INFORMATION
  Report Type: Spontaneous
  Country: US (occurrence: None)
  Receive Date: 20160808
  Receipt Date: 20160808
  Transmission Date: 20161109
  Serious: Yes (Death)
  Sender: FDA-Public Use
  Company Number: None

PATIENT
  Age: 76 Year
  Sex: Male

DRUGS (1)
  1. ZYTIGA [Suspect]
     Active Substance: ABIRATERONE ACETATE
     Indication: PROSTATE CANCER
     Dosage: 4 TABS QD PO
     Route: 048
     Dates: start: 20131209, end: 20160704

REACTIONS (2)
  - Disease complication [None]
  - Prostate cancer [None]

NARRATIVE: CASE EVENT DATE: 20160704
